FAERS Safety Report 5681971-2 (Version None)
Quarter: 2008Q1

REPORT INFORMATION
  Report Type: 
  Country: None (occurrence: None)
  Receive Date: 20080327
  Receipt Date: 20070330
  Transmission Date: 20080703
  Serious: No
  Sender: FDA-Public Use
  Company Number: US-BAYER-US-2007-011281

PATIENT
  Age: 33 Year
  Sex: Female

DRUGS (2)
  1. MIRENA [Suspect]
     Indication: CONTRACEPTION
     Route: 015
     Dates: start: 20060301, end: 20070330
  2. VITAMINS [Concomitant]

REACTIONS (4)
  - DYSMENORRHOEA [None]
  - MENORRHAGIA [None]
  - POLYMENORRHOEA [None]
  - VAGINAL DISCHARGE [None]
